FAERS Safety Report 12499924 (Version 1)
Quarter: 2016Q2

REPORT INFORMATION
  Report Type: Report from Study
  Country: BR (occurrence: BR)
  Receive Date: 20160627
  Receipt Date: 20160627
  Transmission Date: 20160815
  Serious: Yes (Hospitalization, Other)
  Sender: FDA-Public Use
  Company Number: BR-JNJFOC-20160500105

PATIENT
  Age: 44 Year
  Sex: Female

DRUGS (1)
  1. REMICADE [Suspect]
     Active Substance: INFLIXIMAB
     Indication: ANKYLOSING SPONDYLITIS
     Route: 042
     Dates: end: 201605

REACTIONS (7)
  - Off label use [Unknown]
  - Product use issue [Unknown]
  - Systemic lupus erythematosus [Unknown]
  - Pneumonia [Recovered/Resolved]
  - Renal disorder [Unknown]
  - Liver disorder [Unknown]
  - Biopsy [Recovering/Resolving]

NARRATIVE: CASE EVENT DATE: 2016
